FAERS Safety Report 23646435 (Version 2)
Quarter: 2024Q3

REPORT INFORMATION
  Report Type: Spontaneous
  Country: GB (occurrence: GB)
  Receive Date: 20240319
  Receipt Date: 20240710
  Transmission Date: 20241017
  Serious: Yes (Other)
  Sender: TAKEDA
  Company Number: GB-TAKEDA-2024TUS024233

PATIENT
  Sex: Male

DRUGS (1)
  1. CUVITRU [Suspect]
     Active Substance: HUMAN IMMUNOGLOBULIN G
     Indication: Product used for unknown indication
     Dosage: 6 GRAM, 1/WEEK
     Route: 058

REACTIONS (4)
  - Lower respiratory tract infection [Unknown]
  - Ear infection [Unknown]
  - Pyrexia [Unknown]
  - Malaise [Recovered/Resolved]
